FAERS Safety Report 17561927 (Version 2)
Quarter: 2022Q3

REPORT INFORMATION
  Report Type: Spontaneous
  Country: US (occurrence: US)
  Receive Date: 20200319
  Receipt Date: 20220714
  Transmission Date: 20221027
  Serious: Yes (Disabling)
  Sender: FDA-Public Use
  Company Number: US-TEVA-2020-US-1202486

PATIENT

DRUGS (1)
  1. DOCETAXEL [Suspect]
     Active Substance: DOCETAXEL
     Indication: Product used for unknown indication
     Dosage: DOSAGE: 75 MG/M2, NUMBER OF CYCLES :6, EVERY 3 WEEKS.
     Dates: start: 20150908, end: 20151201

REACTIONS (1)
  - Alopecia [Not Recovered/Not Resolved]
